FAERS Safety Report 5271632-6 (Version None)
Quarter: 2007Q1

REPORT INFORMATION
  Report Type: 
  Country: None (occurrence: None)
  Receive Date: 20070321
  Receipt Date: 20070313
  Transmission Date: 20070707
  Serious: Yes (Hospitalization, Other)
  Sender: FDA-Public Use
  Company Number: US-MERCK-0605USA04312

PATIENT
  Sex: Female

DRUGS (6)
  1. FOSAMAX [Suspect]
     Indication: OSTEOPOROSIS
     Route: 048
     Dates: start: 20010101, end: 20060101
  2. CORTICOSTEROIDS (UNSPECIFIED) [Concomitant]
     Route: 065
     Dates: start: 19920101
  3. HORMONES (UNSPECIFIED) [Concomitant]
     Route: 065
     Dates: start: 19920101
  4. [THERAPY UNSPECIFIED] [Concomitant]
     Indication: RHEUMATOID ARTHRITIS
     Route: 065
     Dates: start: 19920101
  5. SYNTHROID [Concomitant]
     Indication: THYROID DISORDER
     Route: 065
  6. IODINE-131 [Concomitant]
     Indication: HYPOTHYROIDISM
     Route: 065
     Dates: start: 19980101

REACTIONS (7)
  - ACUTE RESPIRATORY DISTRESS SYNDROME [None]
  - ANAEMIA [None]
  - ASTHMA [None]
  - DEPRESSION [None]
  - OSTEOMYELITIS [None]
  - OSTEONECROSIS [None]
  - ULCER [None]
